FAERS Safety Report 13873529 (Version 1)
Quarter: 2017Q3

REPORT INFORMATION
  Report Type: Spontaneous
  Country: DE (occurrence: DE)
  Receive Date: 20170816
  Receipt Date: 20170816
  Transmission Date: 20171127
  Serious: Yes (Life-Threatening, Hospitalization)
  Sender: FDA-Public Use
  Company Number: DE-TEVA-795827GER

PATIENT
  Age: 17 Year
  Sex: Male
  Weight: 65 kg

DRUGS (1)
  1. IBANDRONSAEURE 3 MG [Suspect]
     Active Substance: IBANDRONATE SODIUM
     Indication: BONE GIANT CELL TUMOUR MALIGNANT
     Route: 042
     Dates: start: 20170502

REACTIONS (4)
  - Hypercalcaemia [Unknown]
  - Dizziness [Unknown]
  - Abdominal pain upper [Unknown]
  - Vomiting [Unknown]

NARRATIVE: CASE EVENT DATE: 20170721
